FAERS Safety Report 25885950 (Version 1)
Quarter: 2025Q4

REPORT INFORMATION
  Report Type: Spontaneous
  Country: GB (occurrence: GB)
  Receive Date: 20251006
  Receipt Date: 20251006
  Transmission Date: 20260118
  Serious: Yes (Other)
  Sender: NORDIC PHARMA
  Company Number: GB-CELLTRION INC.-2025GB032850

PATIENT
  Age: 50 Year
  Sex: Male

DRUGS (3)
  1. METHOTREXATE [Suspect]
     Active Substance: METHOTREXATE
     Indication: Psoriatic arthropathy
     Dosage: ONCE WEEKLY ON FRIDAYS
  2. STEQEYMA [Concomitant]
     Active Substance: USTEKINUMAB-STBA
     Indication: Psoriatic arthropathy
     Dosage: 45 MG WEEK 0
     Route: 058
     Dates: start: 202508
  3. STEQEYMA [Concomitant]
     Active Substance: USTEKINUMAB-STBA
     Indication: Psoriatic arthropathy
     Dosage: 45 MG WEEK 4
     Route: 058
     Dates: start: 202508

REACTIONS (1)
  - Amylase increased [Unknown]
